FAERS Safety Report 4833221-4 (Version None)
Quarter: 2005Q4

REPORT INFORMATION
  Report Type: 
  Country: None (occurrence: None)
  Receive Date: 20051121
  Receipt Date: 20051116
  Transmission Date: 20060501
  Serious: Yes (Hospitalization)
  Sender: FDA-Public Use
  Company Number: US-JNJFOC-20051003687

PATIENT
  Sex: Female
  Weight: 59.88 kg

DRUGS (4)
  1. LEVAQUIN [Suspect]
     Indication: DIVERTICULITIS
     Route: 048
  2. FLAGYL [Concomitant]
  3. METOPROLOL [Concomitant]
  4. LESCOL [Concomitant]

REACTIONS (2)
  - APHASIA [None]
  - CONFUSIONAL STATE [None]
